FAERS Safety Report 17185692 (Version 1)
Quarter: 2019Q4

REPORT INFORMATION
  Report Type: Report from Study
  Country: ES (occurrence: ES)
  Receive Date: 20191220
  Receipt Date: 20191220
  Transmission Date: 20200122
  Serious: Yes (Hospitalization)
  Sender: FDA-Public Use
  Company Number: ES-ZYDUS-044722

PATIENT
  Age: 47 Year
  Sex: Female

DRUGS (4)
  1. QUETIAPINE/QUETIAPINE FUMARATE [Interacting]
     Active Substance: QUETIAPINE FUMARATE
     Indication: INTENTIONAL OVERDOSE
     Route: 048
     Dates: start: 20190624, end: 20190624
  2. TOPIRAMATE. [Suspect]
     Active Substance: TOPIRAMATE
     Indication: INTENTIONAL OVERDOSE
     Route: 048
     Dates: start: 20190624, end: 20190624
  3. PHENELZINE [Interacting]
     Active Substance: PHENELZINE
     Indication: INTENTIONAL OVERDOSE
     Dosage: IN TOTAL
     Route: 048
     Dates: start: 20190624, end: 20190624
  4. CLONAZEPAM. [Interacting]
     Active Substance: CLONAZEPAM
     Indication: INTENTIONAL OVERDOSE
     Dosage: IN TOTAL
     Route: 048
     Dates: start: 20190624, end: 20190624

REACTIONS (2)
  - Depressed level of consciousness [Recovered/Resolved]
  - Intentional overdose [Recovered/Resolved]

NARRATIVE: CASE EVENT DATE: 20190625
